FAERS Safety Report 10211463 (Version 4)
Quarter: 2014Q4

REPORT INFORMATION
  Report Type: Spontaneous
  Country: FR (occurrence: FR)
  Receive Date: 20140602
  Receipt Date: 20141103
  Transmission Date: 20150528
  Serious: Yes (Death, Hospitalization, Other)
  Sender: FDA-Public Use
  Company Number: FR-BAXTER-2014BAX026385

PATIENT
  Age: 83 Year
  Sex: Male
  Weight: 68 kg

DRUGS (32)
  1. ALPRAZOLAM. [Suspect]
     Active Substance: ALPRAZOLAM
     Indication: PRODUCT USED FOR UNKNOWN INDICATION
     Route: 048
     Dates: start: 20140501, end: 20140505
  2. LOXEN 20 MG [Suspect]
     Active Substance: NICARDIPINE HYDROCHLORIDE
     Indication: HYPERTENSION
     Route: 048
     Dates: start: 20140430, end: 20140504
  3. FEIBA [Suspect]
     Active Substance: ANTI-INHIBITOR COAGULANT COMPLEX
     Route: 042
     Dates: start: 20140425, end: 20140425
  4. XATRAL [Suspect]
     Active Substance: ALFUZOSIN
     Indication: PRODUCT USED FOR UNKNOWN INDICATION
     Route: 048
     Dates: start: 20140424, end: 20140505
  5. SOLU-MEDROL [Concomitant]
     Active Substance: METHYLPREDNISOLONE SODIUM SUCCINATE
     Indication: ACQUIRED HAEMOPHILIA
     Route: 042
     Dates: end: 20140430
  6. CIFLOX [Concomitant]
     Active Substance: CIPROFLOXACIN
     Indication: ESCHERICHIA INFECTION
     Route: 042
     Dates: end: 20140424
  7. DOLIPRANE [Concomitant]
     Active Substance: ACETAMINOPHEN
     Route: 048
  8. CRESTOR [Concomitant]
     Active Substance: ROSUVASTATIN CALCIUM
     Indication: DRUG THERAPY
     Route: 065
  9. ALPRAZOLAM. [Suspect]
     Active Substance: ALPRAZOLAM
     Route: 048
     Dates: start: 20140501, end: 20140505
  10. COVERSYL 2 MG [Suspect]
     Active Substance: PERINDOPRIL
     Indication: HYPERTENSION
     Route: 048
     Dates: start: 20140428, end: 20140503
  11. PRIMPERAN [Concomitant]
     Active Substance: METOCLOPRAMIDE HYDROCHLORIDE
     Indication: PRODUCT USED FOR UNKNOWN INDICATION
     Route: 048
     Dates: start: 20140424, end: 20140424
  12. CEFTRIAXONE BASE [Concomitant]
     Active Substance: CEFTRIAXONE
     Indication: PRODUCT USED FOR UNKNOWN INDICATION
     Route: 042
     Dates: start: 20140424, end: 20140504
  13. IMOVANE [Suspect]
     Active Substance: ZOPICLONE
     Indication: INSOMNIA
     Route: 048
     Dates: end: 20140505
  14. NEBILOX 5 MG [Concomitant]
     Indication: DRUG THERAPY
     Route: 065
  15. LOXEN LP 50 MG [Suspect]
     Active Substance: NICARDIPINE
     Indication: HYPERTENSION
     Route: 048
     Dates: end: 20140505
  16. C VITAMIN [Concomitant]
     Indication: PRODUCT USED FOR UNKNOWN INDICATION
     Route: 048
     Dates: start: 20140428
  17. PLAVIX [Concomitant]
     Active Substance: CLOPIDOGREL BISULFATE
     Indication: DRUG THERAPY
     Route: 065
  18. ADENURIC 80 MG [Concomitant]
     Indication: DRUG THERAPY
     Route: 065
  19. FEIBA [Suspect]
     Active Substance: ANTI-INHIBITOR COAGULANT COMPLEX
     Indication: ACQUIRED HAEMOPHILIA
     Route: 042
     Dates: start: 20140423, end: 20140424
  20. FEIBA [Suspect]
     Active Substance: ANTI-INHIBITOR COAGULANT COMPLEX
     Route: 042
     Dates: start: 20140426, end: 20140505
  21. FEIBA [Suspect]
     Active Substance: ANTI-INHIBITOR COAGULANT COMPLEX
     Dosage: 5000 UNITS
     Route: 065
  22. TAZOCILLINE [Concomitant]
     Active Substance: PIPERACILLIN SODIUM\TAZOBACTAM SODIUM
     Indication: ESCHERICHIA INFECTION
     Route: 042
     Dates: end: 20140424
  23. MOPRAL [Concomitant]
     Active Substance: OMEPRAZOLE SODIUM
     Indication: PROPHYLAXIS
     Route: 048
  24. DUPHALAC [Concomitant]
     Active Substance: LACTULOSE
     Indication: PRODUCT USED FOR UNKNOWN INDICATION
     Route: 048
     Dates: start: 20140425, end: 20140507
  25. AXELER 40 MG/ 10 MG [Concomitant]
     Active Substance: AMLODIPINE BESYLATE\OLMESARTAN MEDOXOMIL
     Indication: DRUG THERAPY
     Route: 065
  26. ZELITREX 500 MG [Suspect]
     Active Substance: VALACYCLOVIR HYDROCHLORIDE
     Indication: HERPES SIMPLEX
     Route: 048
     Dates: start: 20140430, end: 20140503
  27. RASILEZ 300 MG [Concomitant]
     Indication: DRUG THERAPY
     Route: 065
  28. DOLIPRANE [Concomitant]
     Active Substance: ACETAMINOPHEN
     Indication: PAIN
     Route: 048
  29. METOCLOPRAMIDE. [Concomitant]
     Active Substance: METOCLOPRAMIDE
     Indication: VOMITING
     Route: 042
     Dates: start: 20140424, end: 20140505
  30. INEXIUM 20 MG [Concomitant]
     Active Substance: ESOMEPRAZOLE
     Indication: PRODUCT USED FOR UNKNOWN INDICATION
     Route: 048
     Dates: start: 20140323
  31. GLUCOSE LIQUID [Concomitant]
     Indication: PRODUCT USED FOR UNKNOWN INDICATION
     Route: 042
     Dates: start: 20140424, end: 20140508
  32. CORTANCYL 20 MG [Concomitant]
     Active Substance: PREDNISONE
     Indication: PRODUCT USED FOR UNKNOWN INDICATION
     Route: 048
     Dates: start: 20140430

REACTIONS (11)
  - Disseminated intravascular coagulation [Recovered/Resolved]
  - Haematuria [Unknown]
  - Haematoma [Unknown]
  - Bacillus test positive [Unknown]
  - Haemorrhage [Unknown]
  - Asthenia [Unknown]
  - Hypotension [Unknown]
  - Death [Fatal]
  - Haemolysis [Unknown]
  - Thrombocytopenia [Recovered/Resolved]
  - Coagulation factor V level decreased [Unknown]

NARRATIVE: CASE EVENT DATE: 2014
